FAERS Safety Report 4687939-7 (Version None)
Quarter: 2005Q2

REPORT INFORMATION
  Report Type: 
  Country: None (occurrence: None)
  Receive Date: 20050610
  Receipt Date: 20050531
  Transmission Date: 20051028
  Serious: Yes (Other)
  Sender: FDA-Public Use
  Company Number: GB-GLAXOSMITHKLINE-B0383047A

PATIENT
  Age: 15 Year
  Sex: Female

DRUGS (2)
  1. LAMICTAL [Suspect]
     Route: 048
  2. CLONAZEPAM [Concomitant]
     Dosage: 2MG TWICE PER DAY

REACTIONS (4)
  - DIPLOPIA [None]
  - FATIGUE [None]
  - MEDICATION ERROR [None]
  - PETIT MAL EPILEPSY [None]
